FAERS Safety Report 23442064 (Version 1)
Quarter: 2024Q1

REPORT INFORMATION
  Report Type: Spontaneous
  Country: CA (occurrence: CA)
  Receive Date: 20240125
  Receipt Date: 20240125
  Transmission Date: 20240409
  Serious: Yes (Hospitalization, Other)
  Sender: FDA-Public Use
  Company Number: CA-AstraZeneca-2024A013436

PATIENT
  Age: 76 Year
  Sex: Female

DRUGS (1)
  1. TRASTUZUMAB DERUXTECAN [Suspect]
     Active Substance: TRASTUZUMAB DERUXTECAN
     Indication: HER2 positive breast cancer
     Dosage: 375 MG, ONCE EVERY 3 WK
     Route: 042

REACTIONS (6)
  - Cyst [Unknown]
  - Haematological infection [Unknown]
  - Malignant neoplasm progression [Unknown]
  - Sepsis [Unknown]
  - Toxicity to various agents [Unknown]
  - Product dose omission issue [Unknown]
